FAERS Safety Report 6399473-7 (Version None)
Quarter: 2009Q4

REPORT INFORMATION
  Report Type: 
  Country: None (occurrence: None)
  Receive Date: 20091014
  Receipt Date: 20091008
  Transmission Date: 20100525
  Serious: Yes (Other)
  Sender: FDA-Public Use
  Company Number: PHHY2009JP43322

PATIENT
  Age: 74 Year
  Sex: Female

DRUGS (12)
  1. PARLODEL [Suspect]
     Dosage: 3 DF (7.5 MG) DAILY
     Route: 048
  2. PARLODEL [Suspect]
     Dosage: 2 DF (5 MG) DAILY
     Route: 048
  3. PARLODEL [Suspect]
     Dosage: 1.5 DF (3.75 MG) DAILY
     Route: 048
  4. LUVOX [Concomitant]
  5. TOLEDOMIN [Concomitant]
  6. RHYTHMY [Concomitant]
  7. LENDORMIN [Concomitant]
  8. DEPAS [Concomitant]
  9. PAXIL [Concomitant]
  10. LOXONIN [Concomitant]
  11. POLLAKISU [Concomitant]
  12. BYAKKO-KA-NINJIN-TO [Concomitant]

REACTIONS (2)
  - DEPRESSION [None]
  - MALAISE [None]
